FAERS Safety Report 11054777 (Version 1)
Quarter: 2015Q2

REPORT INFORMATION
  Report Type: Spontaneous
  Country: US (occurrence: None)
  Receive Date: 20150421
  Receipt Date: 20150421
  Transmission Date: 20150821
  Serious: No
  Sender: FDA-Public Use
  Company Number: None

PATIENT
  Age: 70 Year
  Sex: Male
  Weight: 92.99 kg

DRUGS (9)
  1. PRAVASTATIN SODIUM. [Concomitant]
     Active Substance: PRAVASTATIN SODIUM
  2. GARLIC. [Concomitant]
     Active Substance: GARLIC
  3. LEVETIRACETAM. [Concomitant]
     Active Substance: LEVETIRACETAM
  4. D3 [Concomitant]
     Active Substance: 25-HYDROXYCHOLECALCIFEROL, 5-TRANS-
  5. DILANTIN [Concomitant]
     Active Substance: PHENYTOIN
  6. DOQUACE [Concomitant]
  7. DILANTIN [Suspect]
     Active Substance: PHENYTOIN
     Indication: SEIZURE
     Dosage: 3-CAPSULES AT BEDTIME TAKE 3 CAPSULE (DILANTIN) AND TWO TABLETS KEPPRA - AT BEDTIME 10PM BY MOUTH
     Route: 048
  8. CENTRUM SILVER MULTIVITAMIN [Concomitant]
  9. LEVOTHYROXIN/SODIUM [Concomitant]

REACTIONS (7)
  - Dyspnoea [None]
  - Extra dose administered [None]
  - Dizziness [None]
  - Rash pruritic [None]
  - Flushing [None]
  - Decreased appetite [None]
  - Chest pain [None]

NARRATIVE: CASE EVENT DATE: 201501
